FAERS Safety Report 11932474 (Version 2)
Quarter: 2016Q1

REPORT INFORMATION
  Report Type: Report from Study
  Country: CA (occurrence: CA)
  Receive Date: 20160120
  Receipt Date: 20160218
  Transmission Date: 20160526
  Serious: No
  Sender: FDA-Public Use
  Company Number: CA-ARIAD PHARMACEUTICALS, INC-2015CA005694

PATIENT
  Sex: Male

DRUGS (1)
  1. ICLUSIG [Suspect]
     Active Substance: PONATINIB
     Indication: CHRONIC MYELOID LEUKAEMIA
     Dosage: UNK
     Route: 048

REACTIONS (1)
  - Non-cardiac chest pain [Unknown]
